FAERS Safety Report 24942028 (Version 1)
Quarter: 2025Q1

REPORT INFORMATION
  Report Type: Spontaneous
  Country: US (occurrence: None)
  Receive Date: 20250206
  Receipt Date: 20250206
  Transmission Date: 20250408
  Serious: Yes (Other)
  Sender: FDA-CTU
  Company Number: None

PATIENT
  Age: 52 Year
  Sex: Female
  Weight: 77.85 kg

DRUGS (4)
  1. WEGOVY [Suspect]
     Active Substance: SEMAGLUTIDE
     Indication: Weight decreased
  2. AZATHIOPRINE [Concomitant]
     Active Substance: AZATHIOPRINE
  3. PLAQUENIL [Concomitant]
     Active Substance: HYDROXYCHLOROQUINE SULFATE
  4. OMEPRAZOLE [Concomitant]
     Active Substance: OMEPRAZOLE

REACTIONS (6)
  - Arthralgia [None]
  - Arthralgia [None]
  - Pain in extremity [None]
  - Systemic lupus erythematosus [None]
  - Condition aggravated [None]
  - Adverse drug reaction [None]

NARRATIVE: CASE EVENT DATE: 20250204
